FAERS Safety Report 24739442 (Version 1)
Quarter: 2024Q4

REPORT INFORMATION
  Report Type: Spontaneous
  Country: HR (occurrence: HR)
  Receive Date: 20241216
  Receipt Date: 20241216
  Transmission Date: 20250115
  Serious: Yes (Other)
  Sender: MYLAN
  Company Number: HR-SANDOZ-SDZ2024HR099402

PATIENT
  Age: 72 Year
  Sex: Female

DRUGS (2)
  1. METHOTREXATE [Suspect]
     Active Substance: METHOTREXATE
     Indication: Rheumatoid arthritis
     Dosage: UNK
     Route: 065
  2. ETANERCEPT [Suspect]
     Active Substance: ETANERCEPT
     Indication: Rheumatoid arthritis
     Dosage: UNK
     Route: 065

REACTIONS (3)
  - Rheumatoid arthritis [Unknown]
  - Injection site erythema [Unknown]
  - Injection site pruritus [Unknown]
